FAERS Safety Report 7921302-8 (Version None)
Quarter: 2011Q4

REPORT INFORMATION
  Report Type: 
  Country: None (occurrence: None)
  Receive Date: 20111117
  Receipt Date: 20111107
  Transmission Date: 20120403
  Serious: Yes (Hospitalization)
  Sender: FDA-Public Use
  Company Number: US-BAYER-2011-020974

PATIENT
  Sex: Female

DRUGS (8)
  1. XANAX [Concomitant]
  2. YASMIN [Suspect]
     Indication: ORAL CONTRACEPTION
     Dosage: UNK
     Dates: start: 20080101, end: 20080101
  3. ZOLOFT [Concomitant]
     Dosage: UNK
     Route: 048
     Dates: start: 20060101
  4. SERTRALINE HYDROCHLORIDE [Concomitant]
  5. YAZ [Suspect]
     Indication: ORAL CONTRACEPTION
     Dosage: UNK
     Dates: start: 20080101, end: 20080101
  6. NSAID'S [Concomitant]
     Dosage: UNK UNK, PRN
     Route: 048
  7. DEPAKOTE [Concomitant]
  8. PLAN B [Concomitant]

REACTIONS (4)
  - INJURY [None]
  - GALLBLADDER DISORDER [None]
  - PAIN [None]
  - ANXIETY [None]
